FAERS Safety Report 16641274 (Version 3)
Quarter: 2019Q3

REPORT INFORMATION
  Report Type: Spontaneous
  Country: US (occurrence: US)
  Receive Date: 20190729
  Receipt Date: 20190917
  Transmission Date: 20191004
  Serious: Yes (Other)
  Sender: FDA-Public Use
  Company Number: US-ROCHE-2364950

PATIENT
  Sex: Female

DRUGS (1)
  1. XOLAIR [Suspect]
     Active Substance: OMALIZUMAB
     Indication: DERMATITIS ALLERGIC
     Dosage: BENEATH THE SKIN, USUALLY VIA INJECTION.
     Route: 058

REACTIONS (2)
  - Blindness unilateral [Recovered/Resolved]
  - Cerebrovascular accident [Recovered/Resolved]
